FAERS Safety Report 10619052 (Version 1)
Quarter: 2014Q4

REPORT INFORMATION
  Report Type: Spontaneous
  Country: GB (occurrence: GB)
  Receive Date: 20141202
  Receipt Date: 20141202
  Transmission Date: 20150529
  Serious: Yes (Hospitalization)
  Sender: FDA-Public Use
  Company Number: GB-ASTRAZENECA-2014SE90273

PATIENT
  Age: 58 Year
  Sex: Male

DRUGS (16)
  1. ASPIRIN. [Concomitant]
     Active Substance: ASPIRIN
  2. TICAGRELOR [Suspect]
     Active Substance: TICAGRELOR
     Indication: ACUTE MYOCARDIAL INFARCTION
     Route: 048
     Dates: start: 20141107, end: 20141110
  3. BUPRENORPHINE [Concomitant]
     Active Substance: BUPRENORPHINE
  4. NICORANDIL [Concomitant]
     Active Substance: NICORANDIL
  5. PREGABALIN. [Concomitant]
     Active Substance: PREGABALIN
  6. TIOTROPIUM [Concomitant]
     Active Substance: TIOTROPIUM
  7. PREDNISOLONE. [Concomitant]
     Active Substance: PREDNISOLONE
  8. CARBOCISTEINE [Concomitant]
     Active Substance: CARBOCYSTEINE
  9. IVABRADINE [Concomitant]
     Active Substance: IVABRADINE
  10. AMITRIPTYLINE [Concomitant]
     Active Substance: AMITRIPTYLINE
  11. ATROVENT [Concomitant]
     Active Substance: IPRATROPIUM BROMIDE
  12. AZITHROMYCIN [Concomitant]
     Active Substance: AZITHROMYCIN ANHYDROUS
  13. SERETIDE [Concomitant]
     Active Substance: FLUTICASONE FUROATE\SALMETEROL XINAFOATE
  14. SIMVASTATIN. [Concomitant]
     Active Substance: SIMVASTATIN
  15. AMOXICILLIN. [Concomitant]
     Active Substance: AMOXICILLIN
  16. SALBUTAMOL [Concomitant]
     Active Substance: ALBUTEROL

REACTIONS (3)
  - Lower respiratory tract infection [Not Recovered/Not Resolved]
  - Contusion [Not Recovered/Not Resolved]
  - Haemoptysis [Not Recovered/Not Resolved]

NARRATIVE: CASE EVENT DATE: 20141112
